FAERS Safety Report 22032891 (Version 2)
Quarter: 2023Q4

REPORT INFORMATION
  Report Type: Spontaneous
  Country: DE (occurrence: DE)
  Receive Date: 20230224
  Receipt Date: 20231204
  Transmission Date: 20240110
  Serious: Yes (Death, Hospitalization, Other)
  Sender: FDA-Public Use
  Company Number: DE-002147023-NVSC2023DE029907

PATIENT
  Sex: Male
  Weight: 72 kg

DRUGS (35)
  1. VALSARTAN [Suspect]
     Active Substance: VALSARTAN
     Indication: Essential hypertension
     Dosage: 160 MILLIGRAM, ONCE A DAY
     Route: 065
  2. VALSARTAN [Suspect]
     Active Substance: VALSARTAN
     Indication: Hypertension
     Dosage: UNK
     Route: 065
     Dates: start: 2012, end: 2014
  3. VALSARTAN [Suspect]
     Active Substance: VALSARTAN
     Dosage: 320 MILLIGRAM, ONCE A DAY
     Route: 065
     Dates: start: 201908
  4. VALSARTAN [Suspect]
     Active Substance: VALSARTAN
     Dosage: 160 MILLIGRAM, ONCE A DAY
     Route: 065
     Dates: start: 201908
  5. VALSARTAN [Suspect]
     Active Substance: VALSARTAN
     Indication: Essential hypertension
     Dosage: 2 DOSAGE FORM, ONCE A DAY
     Route: 065
  6. VALSARTAN [Suspect]
     Active Substance: VALSARTAN
     Indication: Hypertension
     Dosage: 1 DOSAGE FORM, ONCE A DAY
     Route: 065
  7. ALLOBETA [Concomitant]
     Indication: Product used for unknown indication
     Dosage: UNK (300), 1/4 IN THE EVENING
     Route: 065
  8. ALLOPURINOL [Concomitant]
     Active Substance: ALLOPURINOL
     Indication: Product used for unknown indication
     Dosage: UNK, ONCE A DAY (QD, 1/2 X 300 MG EVENING)
     Route: 065
  9. ALLOPURINOL [Concomitant]
     Active Substance: ALLOPURINOL
     Dosage: ONCE A DAY (QD, 1/2 X 150 MG EVENING)
     Route: 065
  10. ATORVASTATIN [Concomitant]
     Active Substance: ATORVASTATIN
     Indication: Product used for unknown indication
     Dosage: 20 MILLIGRAM, ONCE A DAY
     Route: 065
  11. ATROVENT [Concomitant]
     Active Substance: IPRATROPIUM BROMIDE
     Indication: Product used for unknown indication
     Dosage: UNK UNK, ONCE A DAY
  12. BISOPROLOL [Concomitant]
     Active Substance: BISOPROLOL\BISOPROLOL FUMARATE
     Indication: Product used for unknown indication
     Dosage: UNK
     Route: 065
     Dates: start: 20190806
  13. MOLSIDOMINE [Concomitant]
     Active Substance: MOLSIDOMINE
     Indication: Product used for unknown indication
     Dosage: 8 MILLIGRAM, ONCE A DAY
     Route: 065
     Dates: start: 20200528
  14. CANDESARTAN [Concomitant]
     Active Substance: CANDESARTAN
     Indication: Product used for unknown indication
     Dosage: 1.5 DOSAGE FORM, ONCE A DAY
     Route: 065
  15. CANDESARTAN [Concomitant]
     Active Substance: CANDESARTAN
     Dosage: 16 MILLIGRAM, ONCE A DAY
     Route: 065
     Dates: start: 20200528, end: 20200601
  16. ISDN [Concomitant]
     Indication: Product used for unknown indication
     Dosage: 20 MILLIGRAM, ONCE A DAY
     Route: 065
  17. GLUCOBAY [Concomitant]
     Active Substance: ACARBOSE
     Indication: Product used for unknown indication
     Dosage: 100 MILLIGRAM, ONCE A DAY
     Route: 065
  18. POLYETHYLENE GLYCOLS [Concomitant]
     Active Substance: POLYETHYLENE GLYCOLS
     Indication: Product used for unknown indication
     Dosage: UNK (1 UP TO MAX.4 AS NEEDED)
     Route: 065
     Dates: start: 20200928
  19. MSI [Concomitant]
     Active Substance: MORPHINE SULFATE
     Indication: Product used for unknown indication
     Dosage: UNK, ONCE A DAY (QD, (5), UP TO 6X DAILY)
     Route: 058
     Dates: start: 20200707, end: 20200713
  20. MSI [Concomitant]
     Active Substance: MORPHINE SULFATE
     Dosage: (5 MG, EVERY 4 HOURS UP TO 6X DAILY)
     Route: 058
     Dates: start: 20200630, end: 20200630
  21. MOLSIDOMINE [Concomitant]
     Active Substance: MOLSIDOMINE
     Indication: Product used for unknown indication
     Dosage: 8 MILLIGRAM, ONCE A DAY
     Route: 065
  22. NITRENDIPINE [Concomitant]
     Active Substance: NITRENDIPINE
     Indication: Hypertension
     Dosage: UNK, ONCE A DAY (10 UNK, BID (ONE IN THE MORNING AND ONE IN THE EVENING))
     Route: 065
     Dates: start: 201805
  23. PANTOZOL [Concomitant]
     Active Substance: PANTOPRAZOLE SODIUM
     Indication: Product used for unknown indication
     Dosage: 40 MILLIGRAM, ONCE A DAY
     Route: 065
  24. PANTOZOL [Concomitant]
     Active Substance: PANTOPRAZOLE SODIUM
     Dosage: 80 MILLIGRAM, ONCE A DAY (IN MORNING AND EVENING)
     Route: 065
  25. PENTOXIFYLLINE [Concomitant]
     Active Substance: PENTOXIFYLLINE
     Indication: Product used for unknown indication
     Dosage: UNK
     Route: 065
  26. SPIRIVA [Concomitant]
     Active Substance: TIOTROPIUM BROMIDE MONOHYDRATE
     Indication: Product used for unknown indication
     Dosage: 5 MICROGRAM, ONCE A DAY
     Route: 065
  27. SPIRIVA [Concomitant]
     Active Substance: TIOTROPIUM BROMIDE MONOHYDRATE
     Dosage: 18 MICROGRAM, ONCE A DAY
  28. SIMVASTATIN [Concomitant]
     Active Substance: SIMVASTATIN
     Indication: Product used for unknown indication
     Dosage: 20 MILLIGRAM, ONCE A DAY
     Route: 065
  29. TORSEMIDE [Concomitant]
     Active Substance: TORSEMIDE
     Indication: Product used for unknown indication
     Dosage: 20 MILLIGRAM, ONCE A DAY
     Route: 065
  30. TORSEMIDE [Concomitant]
     Active Substance: TORSEMIDE
     Dosage: 10 MILLIGRAM, ONCE A DAY
     Route: 065
  31. TORSEMIDE [Concomitant]
     Active Substance: TORSEMIDE
     Dosage: 20 MILLIGRAM, ONCE A DAY
     Route: 065
  32. OXYGEN [Concomitant]
     Active Substance: OXYGEN
     Indication: Product used for unknown indication
     Dosage: 2 LITER
     Route: 042
     Dates: start: 20200928
  33. OXYGEN [Concomitant]
     Active Substance: OXYGEN
     Dosage: UNK ( PRN, 2 TO 3 L, IF NEEDED)
     Route: 065
     Dates: start: 20200519, end: 20200519
  34. OXYGEN [Concomitant]
     Active Substance: OXYGEN
     Dosage: UNK (2 TO 3 LITRE AT ROOM TEMPERATURE)
     Route: 065
     Dates: start: 20200619, end: 20200619
  35. OXYGEN [Concomitant]
     Active Substance: OXYGEN
     Dosage: 2 LITER, EVERY HOUR (2 L, QH)
     Route: 065
     Dates: start: 20200630, end: 20200630

REACTIONS (27)
  - Hyperplasia [Fatal]
  - Bronchial carcinoma [Fatal]
  - Back pain [Fatal]
  - Carcinoembryonic antigen increased [Fatal]
  - Metastases to spine [Fatal]
  - Metastasis [Fatal]
  - Bronchial obstruction [Fatal]
  - Neoplasm [Fatal]
  - Chronic obstructive pulmonary disease [Fatal]
  - Pulmonary oedema [Unknown]
  - Blood pressure systolic increased [Recovering/Resolving]
  - Cataract [Unknown]
  - Myocardial ischaemia [Unknown]
  - Naevoid melanoma [Unknown]
  - Myocardial infarction [Unknown]
  - Gait disturbance [Unknown]
  - Infection [Unknown]
  - Pruritus [Unknown]
  - Nausea [Unknown]
  - Diarrhoea [Unknown]
  - Pyrexia [Unknown]
  - Chills [Unknown]
  - Somnolence [Unknown]
  - Decreased appetite [Unknown]
  - Atrial flutter [Unknown]
  - Abdominal discomfort [Unknown]
  - Anxiety [Unknown]

NARRATIVE: CASE EVENT DATE: 20150101
